FAERS Safety Report 16247007 (Version 1)
Quarter: 2019Q2

REPORT INFORMATION
  Report Type: Spontaneous
  Country: US (occurrence: US)
  Receive Date: 20190427
  Receipt Date: 20190427
  Transmission Date: 20190711
  Serious: No
  Sender: FDA-Public Use
  Company Number: US-TEVA-2019-US-1038022

PATIENT
  Sex: Female

DRUGS (1)
  1. CARISOPRODOL. [Suspect]
     Active Substance: CARISOPRODOL
     Route: 065

REACTIONS (2)
  - Product availability issue [Unknown]
  - Withdrawal syndrome [Unknown]
